FAERS Safety Report 18219273 (Version 7)
Quarter: 2021Q2

REPORT INFORMATION
  Report Type: Spontaneous
  Country: BR (occurrence: BR)
  Receive Date: 20200901
  Receipt Date: 20210616
  Transmission Date: 20210717
  Serious: Yes (Other)
  Sender: FDA-Public Use
  Company Number: BR-SHIRE-BR202024427

PATIENT
  Age: 38 Year
  Sex: Male

DRUGS (16)
  1. VENVANSE [Suspect]
     Active Substance: LISDEXAMFETAMINE DIMESYLATE
     Dosage: 50 MILLIGRAM EVERY 28 DAYS
     Route: 065
  2. VENVANSE [Suspect]
     Active Substance: LISDEXAMFETAMINE DIMESYLATE
     Dosage: 30 MILLIGRAM, 1X/DAY:QD
     Route: 065
  3. VENVANSE [Suspect]
     Active Substance: LISDEXAMFETAMINE DIMESYLATE
     Dosage: 70 MILLIGRAM
     Route: 065
  4. VENVANSE [Suspect]
     Active Substance: LISDEXAMFETAMINE DIMESYLATE
     Dosage: UNK
     Route: 065
     Dates: start: 202006
  5. ESCITALOPRAM [Concomitant]
     Active Substance: ESCITALOPRAM OXALATE
     Indication: DEPRESSION
     Dosage: 20 MILLIGRAM
     Route: 065
  6. JUNEVE [Suspect]
     Active Substance: LISDEXAMFETAMINE DIMESYLATE
     Dosage: 75 MILLIGRAM
     Route: 065
  7. VENVANSE [Suspect]
     Active Substance: LISDEXAMFETAMINE DIMESYLATE
     Indication: ATTENTION DEFICIT HYPERACTIVITY DISORDER
     Dosage: 70 MILLIGRAM EVERY 28 DAYS
     Route: 048
     Dates: start: 201909
  8. VENVANSE [Suspect]
     Active Substance: LISDEXAMFETAMINE DIMESYLATE
     Dosage: 140 MILLIGRAM
     Route: 065
  9. VENVANSE [Suspect]
     Active Substance: LISDEXAMFETAMINE DIMESYLATE
     Dosage: 50 MILLIGRAM EVERY 28 DAYS
     Route: 065
  10. VENVANSE [Suspect]
     Active Substance: LISDEXAMFETAMINE DIMESYLATE
     Dosage: 70 MILLIGRAM EVERY 28 DAYS
     Route: 065
  11. VENVANSE [Suspect]
     Active Substance: LISDEXAMFETAMINE DIMESYLATE
     Dosage: 70 MILLIGRAM, QD
     Route: 065
     Dates: start: 202002, end: 202006
  12. VENVANSE [Suspect]
     Active Substance: LISDEXAMFETAMINE DIMESYLATE
     Dosage: 70 MILLIGRAM, 1X/DAY:QD
     Route: 065
     Dates: start: 202001
  13. VENVANSE [Suspect]
     Active Substance: LISDEXAMFETAMINE DIMESYLATE
     Dosage: 70 MILLIGRAM, QD
     Route: 048
     Dates: start: 202002
  14. JUNEVE [Suspect]
     Active Substance: LISDEXAMFETAMINE DIMESYLATE
     Indication: ATTENTION DEFICIT HYPERACTIVITY DISORDER
     Dosage: 70 MILLIGRAM, QD
     Route: 065
     Dates: start: 202002, end: 202006
  15. VENVANSE [Suspect]
     Active Substance: LISDEXAMFETAMINE DIMESYLATE
     Dosage: UNK
     Route: 065
  16. JUNEVE [Suspect]
     Active Substance: LISDEXAMFETAMINE DIMESYLATE
     Dosage: UNK
     Route: 065

REACTIONS (24)
  - Irritability [Unknown]
  - Discouragement [Unknown]
  - Incorrect dose administered [Unknown]
  - Mood swings [Unknown]
  - Dry mouth [Recovered/Resolved]
  - Agitation [Unknown]
  - Intentional product misuse [Unknown]
  - Mental impairment [Unknown]
  - Disturbance in attention [Unknown]
  - Tachycardia [Recovered/Resolved]
  - Headache [Unknown]
  - Drug ineffective [Unknown]
  - Inappropriate schedule of product administration [Unknown]
  - Somnolence [Unknown]
  - Increased appetite [Unknown]
  - Asthenia [Unknown]
  - Eating disorder [Unknown]
  - Therapeutic product effect decreased [Unknown]
  - Economic problem [Unknown]
  - Decreased appetite [Recovered/Resolved]
  - Feeling abnormal [Unknown]
  - Product quality issue [Unknown]
  - Dysgraphia [Unknown]
  - Diplopia [Unknown]

NARRATIVE: CASE EVENT DATE: 20200821
